FAERS Safety Report 13631062 (Version 1)
Quarter: 2017Q2

REPORT INFORMATION
  Report Type: Spontaneous
  Country: US (occurrence: US)
  Receive Date: 20170531
  Receipt Date: 20170531
  Transmission Date: 20170830
  Serious: No
  Sender: FDA-Public Use
  Company Number: US-ASTELLAS-1348912

PATIENT
  Age: 77 Year
  Sex: Male

DRUGS (16)
  1. CLONAZEPAM. [Concomitant]
     Active Substance: CLONAZEPAM
     Route: 065
  2. LISINOPRIL. [Concomitant]
     Active Substance: LISINOPRIL
  3. NORTRIPTYLINE [Concomitant]
     Active Substance: NORTRIPTYLINE
  4. DALIRESP [Concomitant]
     Active Substance: ROFLUMILAST
  5. SIMVASTATIN. [Concomitant]
     Active Substance: SIMVASTATIN
  6. IMDUR [Concomitant]
     Active Substance: ISOSORBIDE MONONITRATE
  7. PREDNISONE. [Concomitant]
     Active Substance: PREDNISONE
  8. ATENOLOL. [Concomitant]
     Active Substance: ATENOLOL
  9. WARFARIN [Concomitant]
     Active Substance: WARFARIN
  10. TARCEVA [Suspect]
     Active Substance: ERLOTINIB HYDROCHLORIDE
     Indication: LUNG NEOPLASM MALIGNANT
     Route: 048
     Dates: start: 20131124, end: 20140207
  11. ASPIRIN. [Concomitant]
     Active Substance: ASPIRIN
  12. FOLIC ACID. [Concomitant]
     Active Substance: FOLIC ACID
  13. LASIX [Concomitant]
     Active Substance: FUROSEMIDE
  14. NEXIUM [Concomitant]
     Active Substance: ESOMEPRAZOLE MAGNESIUM
  15. PULMICORT TURBUHALER [Concomitant]
     Active Substance: BUDESONIDE
  16. TAMSULOSIN [Concomitant]
     Active Substance: TAMSULOSIN

REACTIONS (1)
  - Disease progression [Unknown]

NARRATIVE: CASE EVENT DATE: 20140207
